FAERS Safety Report 6908357-4 (Version None)
Quarter: 2010Q3

REPORT INFORMATION
  Report Type: 
  Country: None (occurrence: None)
  Receive Date: 20100803
  Receipt Date: 20100720
  Transmission Date: 20110219
  Serious: Yes (Hospitalization)
  Sender: FDA-Public Use
  Company Number: 7011606

PATIENT
  Age: 34 Year
  Sex: Female
  Weight: 47 kg

DRUGS (3)
  1. REBIF [Suspect]
     Indication: MULTIPLE SCLEROSIS
     Dosage: 44 MCG, 3 IN 1 WK, SUBCUTANEOUS
     Route: 058
     Dates: start: 20100629
  2. TOPAMAX [Concomitant]
  3. FIORICET [Concomitant]

REACTIONS (6)
  - CENTRAL NERVOUS SYSTEM LESION [None]
  - CONDITION AGGRAVATED [None]
  - INJECTION SITE PAIN [None]
  - MIGRAINE [None]
  - PAIN [None]
  - STRESS [None]
